FAERS Safety Report 5902687-0 (Version None)
Quarter: 2008Q3

REPORT INFORMATION
  Report Type: 
  Country: None (occurrence: None)
  Receive Date: 20080929
  Receipt Date: 20080929
  Transmission Date: 20090109
  Serious: No
  Sender: FDA-Public Use
  Company Number: None

PATIENT
  Age: 89 Year
  Sex: Female
  Weight: 67 kg

DRUGS (2)
  1. DILAUDID [Suspect]
     Dosage: 2MG Q10MIN PRN IV
     Route: 042
  2. ZOFRAN [Concomitant]

REACTIONS (4)
  - CYANOSIS [None]
  - MIOSIS [None]
  - NO THERAPEUTIC RESPONSE [None]
  - OXYGEN SATURATION DECREASED [None]
